FAERS Safety Report 21290388 (Version 2)
Quarter: 2022Q3

REPORT INFORMATION
  Report Type: Spontaneous
  Country: JP (occurrence: JP)
  Receive Date: 20220902
  Receipt Date: 20220916
  Transmission Date: 20221027
  Serious: Yes (Other)
  Sender: FDA-Public Use
  Company Number: JP-GILEAD-2022-0594929

PATIENT
  Age: 84 Year
  Sex: Male

DRUGS (3)
  1. VEKLURY [Suspect]
     Active Substance: REMDESIVIR
     Indication: COVID-19
     Dosage: 200 MG, QD
     Route: 041
     Dates: start: 20220819, end: 20220819
  2. VEKLURY [Suspect]
     Active Substance: REMDESIVIR
     Dosage: 100 MG, QD
     Route: 041
     Dates: start: 20220820, end: 20220823
  3. VEKLURY [Suspect]
     Active Substance: REMDESIVIR
     Dosage: 200 MG
     Route: 041
     Dates: start: 20220831

REACTIONS (1)
  - COVID-19 pneumonia [Not Recovered/Not Resolved]
